FAERS Safety Report 8205748-9 (Version None)
Quarter: 2012Q1

REPORT INFORMATION
  Report Type: 
  Country: None (occurrence: None)
  Receive Date: 20120309
  Receipt Date: 20120223
  Transmission Date: 20120608
  Serious: No
  Sender: FDA-Public Use
  Company Number: OPER20120156

PATIENT
  Age: 20 Year
  Sex: Male

DRUGS (9)
  1. TRAMADOL HCL [Concomitant]
  2. IBUPROFEN [Concomitant]
  3. OPANA [Suspect]
     Indication: NEURALGIA
     Dosage: 10 MG, 1 IN 12 HR, ORAL
     Route: 048
  4. OPANA ER [Suspect]
     Indication: NEURALGIA
     Dosage: 60;20 MG, 1 IN 12 HR, ORAL
     Route: 048
     Dates: start: 20110801, end: 20111201
  5. LYRICA [Concomitant]
  6. VALIUM [Concomitant]
  7. XANAX [Concomitant]
  8. CYMBALTA [Concomitant]
  9. VICODIN (PARACETAMOL, HYDROCODONE BITARTRATE) (PARACETAMOL, HYDROCODON [Concomitant]

REACTIONS (1)
  - INADEQUATE ANALGESIA [None]
